FAERS Safety Report 17489841 (Version 1)
Quarter: 2020Q1

REPORT INFORMATION
  Report Type: Spontaneous
  Country: US (occurrence: US)
  Receive Date: 20200303
  Receipt Date: 20200303
  Transmission Date: 20200409
  Serious: No
  Sender: FDA-Public Use
  Company Number: US-AKORN PHARMACEUTICALS-2019AKN01289

PATIENT
  Sex: Female
  Weight: 90.7 kg

DRUGS (3)
  1. OIL OF OLAY [Concomitant]
  2. MYORISAN [Suspect]
     Active Substance: ISOTRETINOIN
     Indication: ACNE CYSTIC
     Dosage: 40 MG, 1X/DAY
     Dates: start: 20190412, end: 20190607
  3. VANIPLY OINTMENT [Concomitant]

REACTIONS (4)
  - Pruritus [Unknown]
  - Off label use [Recovered/Resolved]
  - Dry skin [Unknown]
  - Chapped lips [Unknown]

NARRATIVE: CASE EVENT DATE: 2019
